FAERS Safety Report 20581565 (Version 1)
Quarter: 2022Q1

REPORT INFORMATION
  Report Type: Spontaneous
  Country: US (occurrence: None)
  Receive Date: 20220311
  Receipt Date: 20220311
  Transmission Date: 20220423
  Serious: No
  Sender: FDA-Public Use
  Company Number: 2022A108194

PATIENT
  Sex: Female

DRUGS (4)
  1. TEZSPIRE [Suspect]
     Active Substance: TEZEPELUMAB-EKKO
     Indication: Product used for unknown indication
     Route: 065
  2. ASTHMA [Concomitant]
  3. CONTACT [Concomitant]
  4. SOLIS [Concomitant]

REACTIONS (1)
  - Body temperature abnormal [Unknown]
